FAERS Safety Report 10410291 (Version 1)
Quarter: 2014Q2

REPORT INFORMATION
  Report Type: Spontaneous
  Country: US (occurrence: None)
  Receive Date: 20140530
  Receipt Date: 20140530
  Transmission Date: 20141212
  Serious: No
  Sender: FDA-Public Use
  Company Number: 226227LEO

PATIENT
  Sex: Female

DRUGS (13)
  1. PICATO [Suspect]
     Indication: ACTINIC KERATOSIS
     Route: 061
     Dates: start: 20140210, end: 20140212
  2. ATENOLOL [Concomitant]
  3. BIOTIN [Concomitant]
  4. CALCIUM VIT D (CALCIUM) [Concomitant]
  5. CHLORTHALIDONE [Concomitant]
  6. PREMARIN (ESTROGENS CONJUGATED) [Concomitant]
  7. GLUCOSAMINE CHONDROITIN (JOINT FOOD) [Concomitant]
  8. IBUPROFEN [Concomitant]
  9. METHENAMINE [Concomitant]
  10. MVI (VITAMINS NOS) [Concomitant]
  11. OMEPRAZOLE [Concomitant]
  12. METHENAMINE-SODIUM BIPHOSPHATE (METHENAMINE W/SODIUM PHOSPHATE BASIC) [Concomitant]
  13. CITRACAL (CALCIUM CITRATE) [Concomitant]

REACTIONS (4)
  - Drug ineffective [None]
  - Application site erythema [None]
  - Application site pain [None]
  - Drug administered at inappropriate site [None]
